FAERS Safety Report 19869020 (Version 2)
Quarter: 2022Q1

REPORT INFORMATION
  Report Type: Spontaneous
  Country: CA (occurrence: CA)
  Receive Date: 20210922
  Receipt Date: 20220310
  Transmission Date: 20220423
  Serious: Yes (Other)
  Sender: FDA-Public Use
  Company Number: CA-SA-SAC20210921000562

PATIENT
  Age: 79 Year
  Sex: Male

DRUGS (8)
  1. DUPILUMAB [Suspect]
     Active Substance: DUPILUMAB
     Indication: Product used for unknown indication
     Dosage: 1 DF, QW
  2. DUPILUMAB [Suspect]
     Active Substance: DUPILUMAB
     Dosage: 1 DF, QOW
  3. PREDNISONE [Suspect]
     Active Substance: PREDNISONE
     Indication: Product used for unknown indication
     Dosage: UNK
  4. ACITRETIN [Suspect]
     Active Substance: ACITRETIN
     Indication: Product used for unknown indication
     Dosage: UNK
  5. CYCLOSPORINE [Suspect]
     Active Substance: CYCLOSPORINE
     Indication: Product used for unknown indication
     Dosage: UNK
  6. RISANKIZUMAB [Suspect]
     Active Substance: RISANKIZUMAB
     Indication: Product used for unknown indication
     Dosage: UNK
     Route: 058
  7. USTEKINUMAB [Suspect]
     Active Substance: USTEKINUMAB
     Indication: Product used for unknown indication
     Dosage: UNK
  8. VALTREX [Concomitant]
     Active Substance: VALACYCLOVIR HYDROCHLORIDE
     Indication: Product used for unknown indication
     Dosage: UNK

REACTIONS (13)
  - Botryomycosis [Unknown]
  - Cutaneous T-cell lymphoma [Unknown]
  - Dermatitis exfoliative generalised [Unknown]
  - Genital herpes [Unknown]
  - Hypereosinophilic syndrome [Unknown]
  - Pityriasis rubra pilaris [Unknown]
  - Psoriasis [Unknown]
  - Staphylococcal infection [Unknown]
  - Dermatitis exfoliative generalised [Unknown]
  - Staphylococcal infection [Unknown]
  - Psoriasis [Unknown]
  - Therapeutic product effect incomplete [Unknown]
  - Therapeutic product effect incomplete [Unknown]
